FAERS Safety Report 8298605-3 (Version None)
Quarter: 2012Q1

REPORT INFORMATION
  Report Type: 
  Country: None (occurrence: None)
  Receive Date: 20120323
  Receipt Date: 20090901
  Transmission Date: 20120608
  Serious: Yes (Other)
  Sender: FDA-Public Use
  Company Number: PHEH2009US10182

PATIENT
  Age: 25 Year
  Sex: Female

DRUGS (1)
  1. TOBI [Suspect]
     Dosage: INTRAVENOUS
     Route: 042

REACTIONS (2)
  - BRONCHOSPASM [None]
  - INCORRECT ROUTE OF DRUG ADMINISTRATION [None]
